FAERS Safety Report 5137780-6 (Version None)
Quarter: 2006Q4

REPORT INFORMATION
  Report Type: 
  Country: None (occurrence: None)
  Receive Date: 20061030
  Receipt Date: 20060110
  Transmission Date: 20070319
  Serious: No
  Sender: FDA-Public Use
  Company Number: US-GLAXOSMITHKLINE-A0588606A

PATIENT
  Age: 49 Year
  Sex: Female
  Weight: 98.6 kg

DRUGS (3)
  1. ADVAIR HFA [Suspect]
     Indication: COUGH
     Dosage: 1PUFF TWICE PER DAY
     Route: 055
     Dates: start: 20051227, end: 20060101
  2. PREVACID [Concomitant]
     Dosage: 30MG TWICE PER DAY
  3. SYNTHROID [Concomitant]
     Indication: HYPOTHYROIDISM

REACTIONS (2)
  - COUGH [None]
  - THROAT TIGHTNESS [None]
